FAERS Safety Report 21987467 (Version 1)
Quarter: 2023Q1

REPORT INFORMATION
  Report Type: Spontaneous
  Country: GB (occurrence: GB)
  Receive Date: 20230214
  Receipt Date: 20230214
  Transmission Date: 20230418
  Serious: No
  Sender: FDA-Public Use
  Company Number: None

PATIENT
  Age: 81 Year
  Sex: Female
  Weight: 53 kg

DRUGS (8)
  1. CEPHALEXIN [Suspect]
     Active Substance: CEPHALEXIN
     Indication: Ill-defined disorder
     Dosage: UNK
     Route: 065
     Dates: start: 20220829
  2. FOSFOMYCIN [Concomitant]
     Active Substance: FOSFOMYCIN
     Indication: Ill-defined disorder
     Dosage: ONE DOSE IMMEDIATELY
     Route: 065
     Dates: start: 20220830, end: 20220831
  3. FUSIDIC ACID [Concomitant]
     Active Substance: FUSIDIC ACID
     Indication: Ill-defined disorder
     Dosage: UNK, TID (APPLY THREE TIMES DAILY)
     Route: 065
     Dates: start: 20220609, end: 20220610
  4. POLYETHYLENE GLYCOL 3350\POTASSIUM CHLORIDE\SODIUM BICARBONATE\SODIUM [Concomitant]
     Active Substance: POLYETHYLENE GLYCOL 3350\POTASSIUM CHLORIDE\SODIUM BICARBONATE\SODIUM CHLORIDE
     Indication: Ill-defined disorder
     Dosage: UNK (ONE TO THREE SACHETS DAILY AS REQUIRED )
     Route: 065
     Dates: start: 20220119
  5. LEVOTHYROXINE [Concomitant]
     Active Substance: LEVOTHYROXINE
     Indication: Ill-defined disorder
     Dosage: UNK, QD (ONE TO BE TAKEN DAILY)
     Route: 065
     Dates: start: 20220119
  6. NITROFURANTOIN [Concomitant]
     Active Substance: NITROFURANTOIN
     Indication: Ill-defined disorder
     Dosage: UNK (TAKE TWO SPOONFULS FOUR TIME DAILY FOR SEVEN DAYS)
     Route: 065
     Dates: start: 20220830
  7. PROCHLORPERAZINE [Concomitant]
     Active Substance: PROCHLORPERAZINE
     Indication: Ill-defined disorder
     Dosage: UNK, TID (TAKE 1-2 UP TO 3 TIMES DAILY)
     Route: 065
     Dates: start: 20220727, end: 20220824
  8. SENNOSIDES [Concomitant]
     Active Substance: SENNOSIDES
     Indication: Ill-defined disorder
     Dosage: UNK (2X5ML SPOON AT NIGHT)
     Route: 065
     Dates: start: 20220119

REACTIONS (2)
  - Confusional state [Recovered/Resolved]
  - Paraesthesia oral [Recovered/Resolved]

NARRATIVE: CASE EVENT DATE: 20220829
